FAERS Safety Report 7831724-1 (Version None)
Quarter: 2011Q4

REPORT INFORMATION
  Report Type: 
  Country: None (occurrence: None)
  Receive Date: 20111021
  Receipt Date: 20111018
  Transmission Date: 20120403
  Serious: Yes (Hospitalization, Other)
  Sender: FDA-Public Use
  Company Number: US-SANOFI-AVENTIS-2011SA068684

PATIENT
  Age: 57 Year
  Sex: Female

DRUGS (4)
  1. LANTUS [Suspect]
     Dosage: DOSE:60 UNIT(S)
     Route: 058
  2. SOLOSTAR [Suspect]
     Dates: start: 20100101
  3. LANTUS [Suspect]
     Dosage: DOSE:25 UNIT(S)
     Route: 058
     Dates: start: 20100101
  4. LANTUS [Suspect]
     Dosage: DOSE:30 UNIT(S)
     Route: 058
     Dates: start: 20111001

REACTIONS (6)
  - DIVERTICULITIS [None]
  - MOOD ALTERED [None]
  - HYPOGLYCAEMIA [None]
  - NIGHT SWEATS [None]
  - SPEECH DISORDER [None]
  - BLOOD GLUCOSE INCREASED [None]
